FAERS Safety Report 5124983-X (Version None)
Quarter: 2006Q4

REPORT INFORMATION
  Report Type: 
  Country: None (occurrence: None)
  Receive Date: 20061011
  Receipt Date: 20061010
  Transmission Date: 20070319
  Serious: Yes (Hospitalization)
  Sender: FDA-Public Use
  Company Number: US-GLAXOSMITHKLINE-A0623070A

PATIENT
  Age: 8 Year
  Sex: Male

DRUGS (4)
  1. WELLBUTRIN [Suspect]
     Indication: DEPRESSION
     Dosage: 150MG PER DAY
     Route: 048
     Dates: start: 20061003
  2. ZOLOFT [Suspect]
     Route: 048
  3. SEROQUEL [Concomitant]
  4. CLONIDINE [Concomitant]

REACTIONS (6)
  - ANGER [None]
  - DRUG INEFFECTIVE [None]
  - DYSKINESIA [None]
  - IMPULSIVE BEHAVIOUR [None]
  - IRRITABILITY [None]
  - PERSONALITY CHANGE [None]
